FAERS Safety Report 7087313-2 (Version None)
Quarter: 2010Q4

REPORT INFORMATION
  Report Type: 
  Country: None (occurrence: None)
  Receive Date: 20101108
  Receipt Date: 20101025
  Transmission Date: 20110411
  Serious: Yes (Hospitalization)
  Sender: FDA-Public Use
  Company Number: US-ELI_LILLY_AND_COMPANY-US201010005818

PATIENT
  Age: 64 Year
  Sex: Female
  Weight: 71.882 kg

DRUGS (7)
  1. GEMCITABINE HCL [Suspect]
     Indication: RENAL CELL CARCINOMA
     Dosage: 1290 MG, OTHER
     Dates: start: 20091230, end: 20100909
  2. OTHER PHARMA COMPANY INV DRUG [Suspect]
     Indication: RENAL CELL CARCINOMA
     Dosage: 37.5 MG, OTHER
     Route: 048
     Dates: start: 20091230, end: 20100909
  3. ATENOLOL [Concomitant]
     Dosage: 50 MG, DAILY (1/D)
  4. AMLODIPINE [Concomitant]
     Dosage: 10 MG, DAILY (1/D)
  5. OMEPRAZOLE [Concomitant]
     Dosage: 40 MG, DAILY (1/D)
  6. LEVOTHYROXINE [Concomitant]
     Dosage: 50 UG, DAILY (1/D)
  7. POTASSIUM PHOSPHATES [Concomitant]
     Dosage: 250 MG, UNK

REACTIONS (5)
  - DEEP VEIN THROMBOSIS [None]
  - DYSPNOEA [None]
  - OEDEMA PERIPHERAL [None]
  - PROTEINURIA [None]
  - RENAL FAILURE CHRONIC [None]
